FAERS Safety Report 18559844 (Version 4)
Quarter: 2022Q1

REPORT INFORMATION
  Report Type: Spontaneous
  Country: BR (occurrence: BR)
  Receive Date: 20201130
  Receipt Date: 20220221
  Transmission Date: 20220423
  Serious: Yes (Other)
  Sender: FDA-Public Use
  Company Number: NVSC2020BR318610

PATIENT
  Sex: Male
  Weight: 92 kg

DRUGS (2)
  1. AMLODIPINE\VALSARTAN [Suspect]
     Active Substance: AMLODIPINE\VALSARTAN
     Indication: Hypertension
     Dosage: 1 DOSAGE FORM, QD (15 TO 20 YEARS AGO)
     Route: 048
  2. INSULIN NOS [Concomitant]
     Active Substance: INSULIN NOS
     Indication: Product used for unknown indication
     Dosage: UNK, (WHEN EATS A HIGH-CARBOHYDRATE DIE, STARTED 3 OR 4 YEARS AGO)T)
     Route: 058

REACTIONS (3)
  - Age-related macular degeneration [Not Recovered/Not Resolved]
  - Blindness [Not Recovered/Not Resolved]
  - Arrhythmia [Not Recovered/Not Resolved]
